FAERS Safety Report 5787436-1 (Version None)
Quarter: 2008Q2

REPORT INFORMATION
  Report Type: 
  Country: None (occurrence: None)
  Receive Date: 20080625
  Receipt Date: 20080620
  Transmission Date: 20081010
  Serious: Yes (Other)
  Sender: FDA-Public Use
  Company Number: US-ASTRAZENECA-2008UW12442

PATIENT
  Age: 55 Year
  Sex: Male
  Weight: 97.5 kg

DRUGS (2)
  1. CRESTOR [Suspect]
     Indication: BLOOD CHOLESTEROL INCREASED
     Route: 048
     Dates: end: 20080501
  2. METFORMIN HCL [Concomitant]

REACTIONS (3)
  - ARTHRITIS [None]
  - MYALGIA [None]
  - ROTATOR CUFF SYNDROME [None]
